FAERS Safety Report 8430554-X (Version None)
Quarter: 2012Q2

REPORT INFORMATION
  Report Type: 
  Country: None (occurrence: None)
  Receive Date: 20120612
  Receipt Date: 20120611
  Transmission Date: 20120825
  Serious: Yes (Hospitalization)
  Sender: FDA-Public Use
  Company Number: FR-GLAXOSMITHKLINE-B0790619A

PATIENT
  Sex: Male

DRUGS (3)
  1. LAMICTAL [Suspect]
     Indication: PARTIAL SEIZURES
     Dosage: 500MG PER DAY
     Route: 048
  2. CLOBAZAM [Suspect]
     Indication: PARTIAL SEIZURES
     Dosage: 10MG THREE TIMES PER DAY
     Route: 048
  3. TRILEPTAL [Suspect]
     Indication: PARTIAL SEIZURES
     Dosage: 1500MG PER DAY
     Route: 048
     Dates: start: 20080101

REACTIONS (4)
  - CHOLESTASIS [None]
  - BLOOD ALKALINE PHOSPHATASE INCREASED [None]
  - CHOLANGITIS [None]
  - ALANINE AMINOTRANSFERASE INCREASED [None]
